FAERS Safety Report 8524320-4 (Version None)
Quarter: 2012Q3

REPORT INFORMATION
  Report Type: 
  Country: None (occurrence: None)
  Receive Date: 20120720
  Receipt Date: 20120711
  Transmission Date: 20120928
  Serious: Yes (Hospitalization, Other)
  Sender: FDA-Public Use
  Company Number: FR-VERTEX PHARMACEUTICALS INC.-000000000000000990

PATIENT
  Sex: Male
  Weight: 116 kg

DRUGS (12)
  1. DIAMICRON [Concomitant]
     Indication: DIABETES MELLITUS
  2. ALLOPURINOL [Concomitant]
  3. POTASSIUM CHLORIDE [Concomitant]
  4. BISOPROLOL FUMARATE [Concomitant]
  5. TELAPREVIR [Suspect]
     Indication: HEPATITIS C
     Dosage: DOSAGE FORM: TABLET
     Route: 048
     Dates: start: 20110224, end: 20110518
  6. RIBAVIRIN [Concomitant]
     Indication: HEPATITIS C
     Route: 048
     Dates: start: 20110224, end: 20120125
  7. PEGASYS [Concomitant]
     Indication: HEPATITIS C
     Route: 058
     Dates: start: 20110223, end: 20120125
  8. ATORVASTATIN [Concomitant]
     Indication: PROPHYLAXIS
  9. FUROSEMIDE [Concomitant]
  10. PREVISCAN (FLUINDIONE) [Concomitant]
  11. EZETIMIBE [Concomitant]
     Indication: PROPHYLAXIS
  12. ASPIRIN [Concomitant]

REACTIONS (2)
  - LYMPHADENOPATHY MEDIASTINAL [None]
  - PLEURAL EFFUSION [None]
